FAERS Safety Report 7086101-0 (Version None)
Quarter: 2010Q4

REPORT INFORMATION
  Report Type: 
  Country: None (occurrence: None)
  Receive Date: 20101105
  Receipt Date: 20101028
  Transmission Date: 20110411
  Serious: Yes (Life-Threatening)
  Sender: FDA-Public Use
  Company Number: B0589056A

PATIENT
  Sex: Male

DRUGS (15)
  1. LEXIVA [Suspect]
     Indication: ACQUIRED IMMUNODEFICIENCY SYNDROME
     Dosage: 1400MG PER DAY
     Route: 048
     Dates: start: 20061111, end: 20090216
  2. LEXIVA [Suspect]
     Dosage: 1400MG PER DAY
     Route: 048
     Dates: start: 20090625, end: 20091112
  3. NORVIR [Suspect]
     Indication: ACQUIRED IMMUNODEFICIENCY SYNDROME
     Dosage: 200MG PER DAY
     Route: 048
     Dates: start: 20061111, end: 20090216
  4. TRUVADA [Suspect]
     Indication: HIV INFECTION
     Dosage: 1TAB PER DAY
     Route: 048
     Dates: start: 20061111, end: 20090216
  5. RETROVIR [Suspect]
     Indication: HIV INFECTION
     Dosage: 400MG PER DAY
     Route: 048
     Dates: start: 20090217, end: 20090624
  6. EFAVIRENZ [Suspect]
     Indication: ACQUIRED IMMUNODEFICIENCY SYNDROME
     Dosage: 600MG PER DAY
     Route: 048
     Dates: start: 20090217, end: 20090624
  7. ISENTRESS [Concomitant]
     Indication: HIV INFECTION
     Route: 048
     Dates: start: 20090217
  8. BAKTAR [Concomitant]
     Indication: ANTIFUNGAL PROPHYLAXIS
     Dosage: 1U PER DAY
     Route: 048
     Dates: start: 20080711
  9. EPZICOM [Concomitant]
     Indication: ACQUIRED IMMUNODEFICIENCY SYNDROME
     Route: 048
     Dates: start: 20090625
  10. ZITHROMAX [Concomitant]
     Indication: MYCOBACTERIUM AVIUM COMPLEX INFECTION
     Route: 048
     Dates: start: 20090605
  11. ISCOTIN [Concomitant]
     Indication: TUBERCULOSIS
     Route: 065
     Dates: start: 20090623
  12. ESANBUTOL [Concomitant]
     Indication: TUBERCULOSIS
     Route: 048
     Dates: start: 20090623
  13. PYRAZINAMIDE [Concomitant]
     Indication: TUBERCULOSIS
     Route: 048
     Dates: start: 20090907
  14. NOVORAPID [Concomitant]
     Indication: DIABETES MELLITUS
     Route: 058
     Dates: start: 20090623
  15. LEVEMIR [Concomitant]
     Indication: DIABETES MELLITUS
     Route: 058
     Dates: start: 20090623

REACTIONS (3)
  - CD4 LYMPHOCYTES DECREASED [None]
  - LYMPHOCYTE COUNT DECREASED [None]
  - LYMPHOMA [None]
